FAERS Safety Report 10769006 (Version 3)
Quarter: 2015Q2

REPORT INFORMATION
  Report Type: Spontaneous
  Country: JP (occurrence: JP)
  Receive Date: 20150206
  Receipt Date: 20150404
  Transmission Date: 20150821
  Serious: Yes (Death, Life-Threatening)
  Sender: FDA-Public Use
  Company Number: PHHY2015JP004549

PATIENT
  Age: 71 Year
  Sex: Male
  Weight: 49 kg

DRUGS (3)
  1. AFINITOR [Suspect]
     Active Substance: EVEROLIMUS
     Indication: SARCOMA
     Dosage: 10 MG, QD
     Route: 048
     Dates: start: 20150108, end: 20150121
  2. FEBURIC [Concomitant]
     Active Substance: FEBUXOSTAT
     Indication: BLOOD URIC ACID INCREASED
     Dosage: 20 MG, QD
     Route: 048
     Dates: start: 20141229, end: 20150114
  3. BAKTAR [Concomitant]
     Active Substance: SULFAMETHOXAZOLE\TRIMETHOPRIM
     Indication: STEROID THERAPY
     Dosage: 1 DF, QD
     Route: 048
     Dates: start: 20141229, end: 20150128

REACTIONS (10)
  - Diverticulitis [Fatal]
  - Peritonitis [Fatal]
  - Alanine aminotransferase increased [Fatal]
  - Diverticular perforation [Fatal]
  - Bone marrow failure [Recovered/Resolved]
  - Aspartate aminotransferase increased [Fatal]
  - Blood fibrinogen decreased [Recovered/Resolved]
  - Malignant neoplasm progression [Fatal]
  - Product use issue [Unknown]
  - Platelet count decreased [Recovered/Resolved]

NARRATIVE: CASE EVENT DATE: 20150108
